FAERS Safety Report 12542896 (Version 1)
Quarter: 2016Q3

REPORT INFORMATION
  Report Type: Spontaneous
  Country: US (occurrence: US)
  Receive Date: 20160710
  Receipt Date: 20160710
  Transmission Date: 20161109
  Serious: No
  Sender: FDA-Public Use
  Company Number: US-CELGENEUS-USA-2016070798

PATIENT
  Sex: Male

DRUGS (4)
  1. REVLIMID [Suspect]
     Active Substance: LENALIDOMIDE
     Indication: LYMPHOMA
     Route: 048
     Dates: start: 200604
  2. REVLIMID [Suspect]
     Active Substance: LENALIDOMIDE
     Route: 048
     Dates: start: 201505
  3. REVLIMID [Suspect]
     Active Substance: LENALIDOMIDE
     Route: 048
     Dates: start: 201602
  4. REVLIMID [Suspect]
     Active Substance: LENALIDOMIDE
     Route: 048
     Dates: start: 201106

REACTIONS (1)
  - Weight gain poor [Unknown]
